FAERS Safety Report 8293771-8 (Version None)
Quarter: 2012Q2

REPORT INFORMATION
  Report Type: 
  Country: None (occurrence: None)
  Receive Date: 20120413
  Receipt Date: 20120411
  Transmission Date: 20120825
  Serious: Yes (Hospitalization, Other)
  Sender: FDA-Public Use
  Company Number: ADR-2009-6954

PATIENT
  Sex: Female

DRUGS (1)
  1. LIORESAL [Suspect]
     Indication: MUSCLE SPASTICITY
     Dosage: MCG, DAILY, INTRAH
     Route: 037

REACTIONS (9)
  - DEVICE CONNECTION ISSUE [None]
  - HYPERTONIA [None]
  - MUSCLE SPASTICITY [None]
  - AGITATION [None]
  - CLONUS [None]
  - SCAR [None]
  - PRURITUS [None]
  - DEVICE OCCLUSION [None]
  - WITHDRAWAL SYNDROME [None]
